FAERS Safety Report 26000834 (Version 1)
Quarter: 2025Q4

REPORT INFORMATION
  Report Type: Spontaneous
  Country: US (occurrence: US)
  Receive Date: 20251105
  Receipt Date: 20251105
  Transmission Date: 20260118
  Serious: No
  Sender: ANI
  Company Number: US-ANIPHARMA-2025-US-043250

PATIENT
  Sex: Male

DRUGS (12)
  1. CORTICOTROPIN [Suspect]
     Active Substance: CORTICOTROPIN
     Indication: Nephrotic syndrome
     Dosage: 80U TWO TIMES A WEEK
     Route: 058
  2. CYCLOSPORINE [Concomitant]
     Active Substance: CYCLOSPORINE
  3. METOLAZONE [Concomitant]
     Active Substance: METOLAZONE
  4. NIFEDIPINE [Concomitant]
     Active Substance: NIFEDIPINE
  5. Vitmain D-3-5 [Concomitant]
  6. ASPIRIN [Concomitant]
     Active Substance: ASPIRIN
  7. TYLENOL EXTRA STRENGTH [Concomitant]
     Active Substance: ACETAMINOPHEN
  8. SODIUM BICARBONATE [Concomitant]
     Active Substance: SODIUM BICARBONATE
  9. VELTASSA [Concomitant]
     Active Substance: PATIROMER
  10. LEVOTHYROXINE SODIUM [Concomitant]
     Active Substance: LEVOTHYROXINE SODIUM
  11. BUMETANIDE [Concomitant]
     Active Substance: BUMETANIDE
  12. ATORVASTATIN CALCIUM [Concomitant]
     Active Substance: ATORVASTATIN CALCIUM

REACTIONS (1)
  - Oedema [Recovering/Resolving]
